FAERS Safety Report 10580366 (Version 1)
Quarter: 2014Q4

REPORT INFORMATION
  Report Type: Spontaneous
  Country: JP (occurrence: JP)
  Receive Date: 20141112
  Receipt Date: 20141112
  Transmission Date: 20150529
  Serious: Yes (Hospitalization)
  Sender: FDA-Public Use
  Company Number: JP-009507513-1411JPN004224

PATIENT
  Sex: Female

DRUGS (2)
  1. FOSAMAX [Suspect]
     Active Substance: ALENDRONATE SODIUM
     Dosage: DAILY DOSE UNKNOWN
     Route: 048
  2. FOSAMAX [Suspect]
     Active Substance: ALENDRONATE SODIUM
     Dosage: DAILY DOSE UNKNOWN
     Route: 048
     Dates: start: 20141106, end: 20141107

REACTIONS (3)
  - Adverse event [Unknown]
  - Inappropriate schedule of drug administration [Unknown]
  - Accidental overdose [Unknown]

NARRATIVE: CASE EVENT DATE: 20141107
